FAERS Safety Report 7112474-6 (Version None)
Quarter: 2010Q4

REPORT INFORMATION
  Report Type: 
  Country: None (occurrence: None)
  Receive Date: 20101119
  Receipt Date: 20100706
  Transmission Date: 20110411
  Serious: Yes (Other)
  Sender: FDA-Public Use
  Company Number: US-BAYER-201020346NA

PATIENT
  Age: 34 Year
  Sex: Female
  Weight: 109 kg

DRUGS (12)
  1. YASMIN [Suspect]
     Indication: ORAL CONTRACEPTION
     Route: 048
     Dates: start: 20080520, end: 20080728
  2. OCELLA [Suspect]
     Indication: ORAL CONTRACEPTION
     Route: 048
     Dates: start: 20080729, end: 20090113
  3. LEVOTHYROXINE SODIUM [Concomitant]
     Indication: HYPOTHYROIDISM
     Dates: start: 19960101
  4. ANAPROX DS [Concomitant]
     Dates: start: 20080401
  5. ASCORBIC ACID [Concomitant]
     Dates: start: 20080101
  6. MULTI-VITAMIN [Concomitant]
     Dates: start: 20080101
  7. MAGNESIUM [Concomitant]
     Dates: start: 20080101
  8. LAMODIL [Concomitant]
  9. PROMETHAZINE HYDROCHLORIDE [Concomitant]
  10. WELLBUTRIN XL [Concomitant]
  11. METOPROLOL SUCCINATE [Concomitant]
  12. RANITIDINE [Concomitant]

REACTIONS (9)
  - ABDOMINAL PAIN UPPER [None]
  - ARRHYTHMIA [None]
  - BILIARY COLIC [None]
  - CHEST PAIN [None]
  - CHOLECYSTITIS ACUTE [None]
  - CHOLELITHIASIS [None]
  - DYSPNOEA [None]
  - PALPITATIONS [None]
  - VENTRICULAR EXTRASYSTOLES [None]
